FAERS Safety Report 9587106 (Version 1)
Quarter: 2013Q4

REPORT INFORMATION
  Report Type: Report from Study
  Country: BR (occurrence: BR)
  Receive Date: 20131003
  Receipt Date: 20131003
  Transmission Date: 20140711
  Serious: Yes (Other)
  Sender: FDA-Public Use
  Company Number: BR-009507513-1310BRA001629

PATIENT
  Age: 74 Year
  Sex: Female
  Weight: 77 kg

DRUGS (11)
  1. BLINDED EZETIMIBE (+) SIMVASTATIN [Suspect]
     Indication: ACUTE CORONARY SYNDROME
     Dosage: UNK
     Route: 048
     Dates: start: 20080109, end: 20090310
  2. BLINDED PLACEBO [Suspect]
     Indication: ACUTE CORONARY SYNDROME
     Dosage: UNK
     Route: 048
     Dates: start: 20080109, end: 20090310
  3. BLINDED POST TRIAL THERAPY [Suspect]
     Indication: ACUTE CORONARY SYNDROME
     Dosage: UNK
     Route: 048
     Dates: start: 20080109, end: 20090310
  4. BLINDED PRE TRIAL THERAPY [Suspect]
     Indication: ACUTE CORONARY SYNDROME
     Dosage: UNK
     Route: 048
     Dates: start: 20080109, end: 20090310
  5. BLINDED SIMVASTATIN [Suspect]
     Indication: ACUTE CORONARY SYNDROME
     Dosage: UNK
     Route: 048
     Dates: start: 20080109, end: 20090310
  6. BLINDED THERAPY [Suspect]
     Indication: ACUTE CORONARY SYNDROME
     Dosage: UNK
     Route: 048
     Dates: start: 20080109, end: 20090310
  7. SIMVASTATIN [Suspect]
     Dosage: UNK
     Route: 048
     Dates: start: 20090310
  8. ENALAPRIL MALEATE [Concomitant]
     Dosage: UNK
     Route: 048
     Dates: start: 20130510
  9. ASPIRIN [Concomitant]
     Dosage: UNK
     Route: 048
     Dates: start: 20080103
  10. METFORMIN [Concomitant]
     Dosage: UNK
     Route: 048
     Dates: start: 20080103
  11. ATENOLOL [Concomitant]
     Dosage: UNK
     Route: 048
     Dates: start: 20080103

REACTIONS (1)
  - Breast cancer [Unknown]
